FAERS Safety Report 18771297 (Version 1)
Quarter: 2021Q1

REPORT INFORMATION
  Report Type: Report from Study
  Country: BR (occurrence: BR)
  Receive Date: 20210121
  Receipt Date: 20210121
  Transmission Date: 20210419
  Serious: Yes (Other)
  Sender: FDA-Public Use
  Company Number: NVSC2021BR010877

PATIENT
  Sex: Female

DRUGS (1)
  1. COSENTYX [Suspect]
     Active Substance: SECUKINUMAB
     Indication: PSORIATIC ARTHROPATHY
     Dosage: UNK, QMO
     Route: 065
     Dates: start: 20170816, end: 202012

REACTIONS (6)
  - Asthenia [Not Recovered/Not Resolved]
  - Drug ineffective [Unknown]
  - General physical health deterioration [Unknown]
  - Deafness unilateral [Unknown]
  - Deafness [Unknown]
  - Pain [Not Recovered/Not Resolved]
